FAERS Safety Report 19952628 (Version 2)
Quarter: 2021Q4

REPORT INFORMATION
  Report Type: Report from Study
  Country: JP (occurrence: JP)
  Receive Date: 20211014
  Receipt Date: 20211028
  Transmission Date: 20220303
  Serious: No
  Sender: FDA-Public Use
  Company Number: JP-CELLTRION INC.-2021JP013928

PATIENT

DRUGS (17)
  1. INVESTIGATIONAL BIOSIMILARS [Suspect]
     Active Substance: INVESTIGATIONAL BIOSIMILARS
     Indication: HER2 positive gastric cancer
     Dosage: 516 MILLIGRAM, QD
     Route: 041
     Dates: start: 20201006, end: 20201006
  2. INVESTIGATIONAL BIOSIMILARS [Suspect]
     Active Substance: INVESTIGATIONAL BIOSIMILARS
     Dosage: 373 MILLIGRAM, QD
     Route: 041
     Dates: start: 20201027, end: 20201027
  3. INVESTIGATIONAL BIOSIMILARS [Suspect]
     Active Substance: INVESTIGATIONAL BIOSIMILARS
     Dosage: 373 MILLIGRAM, QD
     Route: 041
     Dates: start: 20201117, end: 20201117
  4. INVESTIGATIONAL BIOSIMILARS [Suspect]
     Active Substance: INVESTIGATIONAL BIOSIMILARS
     Dosage: 373 MILLIGRAM, QD
     Route: 041
     Dates: start: 20201208, end: 20201208
  5. INVESTIGATIONAL BIOSIMILARS [Suspect]
     Active Substance: INVESTIGATIONAL BIOSIMILARS
     Dosage: 373 MILLIGRAM, QD
     Route: 041
     Dates: start: 20210105, end: 20210105
  6. OXALIPLATIN [Suspect]
     Active Substance: OXALIPLATIN
     Indication: HER2 positive gastric cancer
     Dosage: 175 MILLIGRAM, QD
     Route: 041
     Dates: start: 20201006, end: 20201006
  7. OXALIPLATIN [Suspect]
     Active Substance: OXALIPLATIN
     Dosage: 173 MILLIGRAM, QD
     Route: 041
     Dates: start: 20201027, end: 20201027
  8. OXALIPLATIN [Suspect]
     Active Substance: OXALIPLATIN
     Dosage: 173 MILLIGRAM, QD
     Route: 041
     Dates: start: 20201117, end: 20201117
  9. OXALIPLATIN [Suspect]
     Active Substance: OXALIPLATIN
     Dosage: 173 MILLIGRAM, QD
     Route: 041
     Dates: start: 20201208, end: 20201208
  10. OXALIPLATIN [Suspect]
     Active Substance: OXALIPLATIN
     Dosage: 173 MILLIGRAM, QD
     Route: 041
     Dates: start: 20210105, end: 20210105
  11. GIMERACIL\OTERACIL\TEGAFUR [Suspect]
     Active Substance: GIMERACIL\OTERACIL\TEGAFUR
     Indication: HER2 positive gastric cancer
     Dosage: 120 MILLIGRAM, QD
     Route: 048
     Dates: start: 20201006, end: 20201020
  12. GIMERACIL\OTERACIL\TEGAFUR [Suspect]
     Active Substance: GIMERACIL\OTERACIL\TEGAFUR
     Dosage: 120 MILLIGRAM, QD
     Route: 048
     Dates: start: 20201027, end: 20201110
  13. GIMERACIL\OTERACIL\TEGAFUR [Suspect]
     Active Substance: GIMERACIL\OTERACIL\TEGAFUR
     Dosage: 120 MILLIGRAM, QD
     Route: 048
     Dates: start: 20201117, end: 20201201
  14. GIMERACIL\OTERACIL\TEGAFUR [Suspect]
     Active Substance: GIMERACIL\OTERACIL\TEGAFUR
     Dosage: 100 MILLIGRAM, QD
     Route: 048
     Dates: start: 20201208, end: 20201222
  15. GIMERACIL\OTERACIL\TEGAFUR [Suspect]
     Active Substance: GIMERACIL\OTERACIL\TEGAFUR
     Dosage: 100 MILLIGRAM, QD
     Route: 048
     Dates: start: 20210105, end: 20210119
  16. APREPITANT [Concomitant]
     Active Substance: APREPITANT
     Indication: Prophylaxis of nausea and vomiting
     Dosage: UNK
  17. DECADRON [Concomitant]
     Active Substance: DEXAMETHASONE
     Indication: Prophylaxis of nausea and vomiting
     Dosage: UNK

REACTIONS (11)
  - Peripheral sensory neuropathy [Not Recovered/Not Resolved]
  - Abdominal distension [Recovered/Resolved]
  - Infusion related reaction [Recovered/Resolved]
  - Diarrhoea [Recovered/Resolved]
  - Diarrhoea [Not Recovered/Not Resolved]
  - Decreased appetite [Recovered/Resolved]
  - Decreased appetite [Not Recovered/Not Resolved]
  - Nausea [Recovered/Resolved]
  - Anaemia [Not Recovered/Not Resolved]
  - Underdose [Unknown]
  - Off label use [Unknown]

NARRATIVE: CASE EVENT DATE: 20201006
